FAERS Safety Report 10289651 (Version 2)
Quarter: 2014Q1

REPORT INFORMATION
  Report Type: Spontaneous
  Country: US (occurrence: None)
  Receive Date: 20120817
  Receipt Date: 20130815
  Transmission Date: 20141002
  Serious: Yes (Hospitalization, Other)
  Sender: FDA-Public Use
  Company Number: ADR-2012-00507

PATIENT
  Sex: Female

DRUGS (2)
  1. LIORESAL [Suspect]
     Indication: MUSCLE SPASTICITY
     Dosage: 55 MCG/DAY
  2. LIORESAL [Suspect]
     Indication: MULTIPLE SCLEROSIS
     Dosage: 55 MCG/DAY

REACTIONS (10)
  - Pyrexia [None]
  - Muscular weakness [None]
  - Abasia [None]
  - Sedation [None]
  - Asthenia [None]
  - Hypotonia [None]
  - Multiple sclerosis relapse [None]
  - Pain [None]
  - Urinary tract infection [None]
  - Muscle spasticity [None]
